FAERS Safety Report 18978752 (Version 1)
Quarter: 2021Q1

REPORT INFORMATION
  Report Type: Spontaneous
  Country: US (occurrence: US)
  Receive Date: 20210308
  Receipt Date: 20210308
  Transmission Date: 20210420
  Serious: Yes (Other)
  Sender: FDA-Public Use
  Company Number: US-BAUSCH-BL-2021-007051

PATIENT
  Sex: Female

DRUGS (1)
  1. RETISERT [Suspect]
     Active Substance: FLUOCINOLONE ACETONIDE
     Indication: PRODUCT USED FOR UNKNOWN INDICATION
     Dosage: INTRAVITREAL IMPLANT
     Route: 065
     Dates: start: 20120214

REACTIONS (5)
  - Blindness [Unknown]
  - Device dislocation [Unknown]
  - Injury corneal [Unknown]
  - Device breakage [Unknown]
  - Product residue present [Unknown]

NARRATIVE: CASE EVENT DATE: 20190207
